FAERS Safety Report 21693604 (Version 2)
Quarter: 2022Q4

REPORT INFORMATION
  Report Type: Spontaneous
  Country: JP (occurrence: JP)
  Receive Date: 20221207
  Receipt Date: 20221215
  Transmission Date: 20230112
  Serious: Yes (Hospitalization)
  Sender: FDA-Public Use
  Company Number: JP-ASPEN-JPG2021JP002021AA

PATIENT
  Age: 43 Year
  Sex: Female

DRUGS (3)
  1. DEXAMETHASONE [Suspect]
     Active Substance: DEXAMETHASONE
     Indication: Angioimmunoblastic T-cell lymphoma
     Dosage: 33 MG/DAY OF DEXAMETHASONE FROM DAY 1 TO DAY 4
     Route: 065
  2. GEMCITABINE [Suspect]
     Active Substance: GEMCITABINE
     Indication: Angioimmunoblastic T-cell lymphoma
     Dosage: 1000 MG/M2, QD
     Route: 065
  3. CISPLATIN [Suspect]
     Active Substance: CISPLATIN
     Indication: Angioimmunoblastic T-cell lymphoma
     Dosage: 75 MG/M2 OF CISPLATIN ON DAY 1
     Route: 065

REACTIONS (5)
  - Renal-limited thrombotic microangiopathy [Recovered/Resolved]
  - Urinary casts [Recovered/Resolved]
  - Acute kidney injury [Recovered/Resolved]
  - Anaemia [Recovered/Resolved]
  - Inflammation [Recovered/Resolved]
